FAERS Safety Report 17763131 (Version 5)
Quarter: 2021Q2

REPORT INFORMATION
  Report Type: Report from Study
  Country: CA (occurrence: CA)
  Receive Date: 20200508
  Receipt Date: 20210611
  Transmission Date: 20210716
  Serious: Yes (Other)
  Sender: FDA-Public Use
  Company Number: PHHY2015CA169370

PATIENT
  Age: 71 Year
  Sex: Female

DRUGS (9)
  1. SANDOSTATIN [Suspect]
     Active Substance: OCTREOTIDE ACETATE
  2. LETROZOLE. [Concomitant]
     Active Substance: LETROZOLE
     Indication: PRODUCT USED FOR UNKNOWN INDICATION
     Dosage: 2.5 MG, QD
     Route: 048
  3. SANDOSTATIN LAR DEPOT [Suspect]
     Active Substance: OCTREOTIDE ACETATE
  4. ATIVAN [Concomitant]
     Active Substance: LORAZEPAM
     Indication: PRODUCT USED FOR UNKNOWN INDICATION
     Dosage: 1 MG, QHS PRN
     Route: 048
  5. SANDOSTATIN LAR DEPOT [Suspect]
     Active Substance: OCTREOTIDE ACETATE
     Indication: NEUROENDOCRINE TUMOUR
     Dosage: 30 MG, QMO
     Route: 030
     Dates: start: 20130730
  6. CALCIA [Concomitant]
     Indication: PRODUCT USED FOR UNKNOWN INDICATION
     Dosage: UNK UNK, BID
     Route: 048
  7. SANDOSTATIN LAR DEPOT [Suspect]
     Active Substance: OCTREOTIDE ACETATE
     Dosage: 60 MG, Q4W
     Route: 030
     Dates: start: 20140527
  8. SANDOSTATIN [Suspect]
     Active Substance: OCTREOTIDE ACETATE
     Indication: NEUROENDOCRINE TUMOUR
     Dosage: UNK
     Route: 058
     Dates: start: 20130726
  9. SANDOSTATIN [Suspect]
     Active Substance: OCTREOTIDE ACETATE

REACTIONS (24)
  - Blood pressure diastolic decreased [Unknown]
  - Nasal congestion [Recovering/Resolving]
  - Back pain [Recovered/Resolved]
  - Anxiety [Unknown]
  - Bronchitis [Unknown]
  - Pyrexia [Unknown]
  - Cough [Recovering/Resolving]
  - Blood pressure increased [Unknown]
  - Product dose omission issue [Unknown]
  - Hypoacusis [Recovering/Resolving]
  - Throat irritation [Unknown]
  - Productive cough [Unknown]
  - Inflammation [Unknown]
  - Blood test abnormal [Unknown]
  - Stoma site discomfort [Recovering/Resolving]
  - Needle issue [Unknown]
  - Fatigue [Unknown]
  - Body temperature decreased [Unknown]
  - Injection site pain [Unknown]
  - Chest pain [Recovered/Resolved]
  - Rhinorrhoea [Recovered/Resolved]
  - Blood pressure systolic increased [Unknown]
  - Body temperature increased [Unknown]
  - Bone density decreased [Unknown]

NARRATIVE: CASE EVENT DATE: 20151218
